FAERS Safety Report 5751557-X (Version None)
Quarter: 2008Q2

REPORT INFORMATION
  Report Type: 
  Country: None (occurrence: None)
  Receive Date: 20080528
  Receipt Date: 20080518
  Transmission Date: 20081010
  Serious: Yes (Other)
  Sender: FDA-Public Use
  Company Number: PHHO2008US06488

PATIENT
  Age: 55 Year
  Sex: Female

DRUGS (1)
  1. TEGASEROD [Suspect]
     Indication: IRRITABLE BOWEL SYNDROME
     Dosage: 6 MG, BID
     Route: 048
     Dates: start: 20071120

REACTIONS (3)
  - BLOOD PROLACTIN INCREASED [None]
  - BRAIN MASS [None]
  - GALACTORRHOEA [None]
